FAERS Safety Report 7133296-6 (Version None)
Quarter: 2010Q4

REPORT INFORMATION
  Report Type: 
  Country: None (occurrence: None)
  Receive Date: 20101202
  Receipt Date: 20101130
  Transmission Date: 20110411
  Serious: Yes (Death)
  Sender: FDA-Public Use
  Company Number: GR-PFIZER INC-2010146589

PATIENT
  Sex: Male

DRUGS (16)
  1. PIPERACILLIN AND TAZOBACTAM [Suspect]
  2. PRAMIPEXOLE [Suspect]
     Indication: PARKINSON'S DISEASE
  3. PRAMIPEXOLE [Suspect]
     Indication: PSYCHOTIC DISORDER
  4. AMANTADINE HCL [Suspect]
     Indication: PARKINSON'S DISEASE
  5. AMANTADINE HCL [Suspect]
     Indication: PSYCHOTIC DISORDER
  6. QUETIAPINE [Suspect]
     Indication: PARKINSON'S DISEASE
  7. QUETIAPINE [Suspect]
     Indication: PSYCHOTIC DISORDER
  8. LEVODOPA [Suspect]
     Indication: PARKINSON'S DISEASE
  9. LEVODOPA [Suspect]
     Indication: PSYCHOTIC DISORDER
  10. CARBIDOPA [Suspect]
     Indication: PARKINSON'S DISEASE
  11. CARBIDOPA [Suspect]
     Indication: PSYCHOTIC DISORDER
  12. PIRACETAM [Suspect]
     Indication: PARKINSON'S DISEASE
  13. PIRACETAM [Suspect]
     Indication: PSYCHOTIC DISORDER
  14. ROTIGOTINE [Suspect]
     Indication: PARKINSON'S DISEASE
  15. ROTIGOTINE [Suspect]
     Indication: PSYCHOTIC DISORDER
  16. HEPARIN [Suspect]

REACTIONS (1)
  - DRUG INEFFECTIVE [None]
